FAERS Safety Report 10191848 (Version 1)
Quarter: 2014Q2

REPORT INFORMATION
  Report Type: Spontaneous
  Country: US (occurrence: US)
  Receive Date: 20140523
  Receipt Date: 20140523
  Transmission Date: 20141212
  Serious: Yes (Hospitalization, Other)
  Sender: FDA-Public Use
  Company Number: US-GILEAD-2014-0103168

PATIENT
  Age: 74 Year
  Sex: Female

DRUGS (4)
  1. LETAIRIS [Suspect]
     Indication: PULMONARY HYPERTENSION
     Dosage: 5 MG, QD
     Route: 065
     Dates: start: 20090207
  2. SILDENAFIL [Concomitant]
  3. AMIODARONE [Concomitant]
  4. METOPROLOL [Concomitant]

REACTIONS (1)
  - Cardiac failure [Not Recovered/Not Resolved]
